FAERS Safety Report 24135845 (Version 7)
Quarter: 2025Q1

REPORT INFORMATION
  Report Type: Spontaneous
  Country: US (occurrence: US)
  Receive Date: 20240725
  Receipt Date: 20250320
  Transmission Date: 20250408
  Serious: Yes (Other)
  Sender: BRISTOL-MYERS SQUIBB COMPANY
  Company Number: US-BRISTOL-MYERS SQUIBB COMPANY-2024-117762

PATIENT
  Age: 72 Year
  Sex: Male

DRUGS (2)
  1. REVLIMID [Suspect]
     Active Substance: LENALIDOMIDE
     Indication: Plasma cell myeloma
     Dosage: FREQUENCY: 1 CAPSULE DAILY FOR 14 DAYS, THEN 7 DAYS OFF
     Route: 048
  2. REVLIMID [Suspect]
     Active Substance: LENALIDOMIDE
     Dosage: DAILY FOR 14 DAYS
     Route: 048

REACTIONS (10)
  - Product dose omission issue [Unknown]
  - Off label use [Unknown]
  - Muscle spasms [Unknown]
  - Joint swelling [Recovering/Resolving]
  - Neuropathy peripheral [Unknown]
  - Musculoskeletal stiffness [Unknown]
  - Muscle twitching [Unknown]
  - Peripheral swelling [Recovering/Resolving]
  - Onychoclasis [Unknown]
  - Dry skin [Unknown]
